FAERS Safety Report 4869262-0 (Version None)
Quarter: 2005Q4

REPORT INFORMATION
  Report Type: 
  Country: None (occurrence: None)
  Receive Date: 20051230
  Receipt Date: 20051215
  Transmission Date: 20060501
  Serious: Yes (Congenital Anomaly, Other)
  Sender: FDA-Public Use
  Company Number: NL-JNJFOC-20051204155

PATIENT

DRUGS (1)
  1. HALDOL [Suspect]
     Indication: NAUSEA

REACTIONS (1)
  - CONGENITAL ANOMALY [None]
